FAERS Safety Report 9706199 (Version 2)
Quarter: 2013Q4

REPORT INFORMATION
  Report Type: Spontaneous
  Country: US (occurrence: US)
  Receive Date: 20131124
  Receipt Date: 20131220
  Transmission Date: 20140711
  Serious: No
  Sender: FDA-Public Use
  Company Number: US-009507513-1311USA007481

PATIENT
  Sex: Female
  Weight: 120.18 kg

DRUGS (2)
  1. NEXPLANON [Suspect]
     Indication: CONTRACEPTION
     Dosage: THE FIRST ROD
     Route: 059
     Dates: start: 20130425, end: 20131011
  2. NEXPLANON [Suspect]
     Dosage: THE SECOND ROD
     Route: 059
     Dates: start: 20131025

REACTIONS (2)
  - Device breakage [Recovered/Resolved]
  - Device breakage [Unknown]
